FAERS Safety Report 6890004-1 (Version None)
Quarter: 2010Q3

REPORT INFORMATION
  Report Type: 
  Country: None (occurrence: None)
  Receive Date: 20100730
  Receipt Date: 20080630
  Transmission Date: 20110219
  Serious: No
  Sender: FDA-Public Use
  Company Number: US-PFIZER INC-2008055353

PATIENT
  Sex: Male

DRUGS (11)
  1. LIPITOR [Suspect]
  2. ALL OTHER THERAPEUTIC PRODUCTS [Concomitant]
  3. AMBIEN [Concomitant]
  4. QUINAPRIL [Concomitant]
  5. FELODIPINE [Concomitant]
  6. PLAVIX [Concomitant]
  7. LEVOTHYROXINE SODIUM [Concomitant]
  8. ACIPHEX [Concomitant]
  9. VITAMIN B [Concomitant]
  10. FISH OIL [Concomitant]
  11. CENTRUM SILVER [Concomitant]

REACTIONS (2)
  - JOINT LOCK [None]
  - MUSCLE SPASMS [None]
